FAERS Safety Report 5464059-5 (Version None)
Quarter: 2007Q3

REPORT INFORMATION
  Report Type: 
  Country: None (occurrence: None)
  Receive Date: 20070921
  Receipt Date: 20070910
  Transmission Date: 20080115
  Serious: Yes (Hospitalization)
  Sender: FDA-Public Use
  Company Number: US-JNJFOC-20070902227

PATIENT
  Sex: Female
  Weight: 90.72 kg

DRUGS (3)
  1. DURAGESIC-100 [Suspect]
     Route: 062
  2. DURAGESIC-100 [Suspect]
     Indication: PAIN
     Route: 062
  3. LORTAB [Concomitant]
     Indication: BREAKTHROUGH PAIN
     Dosage: 10/500 MG AS NEEDED
     Route: 048

REACTIONS (10)
  - CHONDROPATHY [None]
  - DRUG ADMINISTERED AT INAPPROPRIATE SITE [None]
  - DRUG DOSE OMISSION [None]
  - DRUG WITHDRAWAL SYNDROME [None]
  - MENISCUS LESION [None]
  - PAIN [None]
  - PHARMACEUTICAL PRODUCT COMPLAINT [None]
  - ROAD TRAFFIC ACCIDENT [None]
  - SPINAL OSTEOARTHRITIS [None]
  - WRONG TECHNIQUE IN DRUG USAGE PROCESS [None]
